FAERS Safety Report 10616250 (Version 1)
Quarter: 2014Q4

REPORT INFORMATION
  Report Type: Spontaneous
  Country: US (occurrence: None)
  Receive Date: 20141126
  Receipt Date: 20141126
  Transmission Date: 20150529
  Serious: Yes (Other)
  Sender: FDA-Public Use
  Company Number: None

PATIENT
  Age: 59 Year
  Sex: Male
  Weight: 117.03 kg

DRUGS (1)
  1. FARXIGA [Suspect]
     Active Substance: DAPAGLIFLOZIN PROPANEDIOL
     Indication: HYPERGLYCAEMIA
     Dosage: ONE 10MG PILL QD ORAL
     Route: 048
     Dates: start: 20141029, end: 20141119

REACTIONS (4)
  - Skin ulcer [None]
  - Pruritus [None]
  - Polyuria [None]
  - Hyperglycaemia [None]

NARRATIVE: CASE EVENT DATE: 20141119
